FAERS Safety Report 7089874-6 (Version None)
Quarter: 2010Q4

REPORT INFORMATION
  Report Type: 
  Country: None (occurrence: None)
  Receive Date: 20101108
  Receipt Date: 20101028
  Transmission Date: 20110411
  Serious: Yes (Hospitalization)
  Sender: FDA-Public Use
  Company Number: NL-AMGEN-KDL443284

PATIENT

DRUGS (3)
  1. ENBREL [Suspect]
     Indication: PSORIATIC ARTHROPATHY
     Dosage: 50 MG, QWK
     Dates: start: 20100719
  2. METHOTREXATE [Concomitant]
  3. OXYCONTIN [Concomitant]
     Dosage: 20 MG, BID

REACTIONS (3)
  - CALCIUM METABOLISM DISORDER [None]
  - CONDITION AGGRAVATED [None]
  - PAIN [None]
